FAERS Safety Report 4702885-8 (Version None)
Quarter: 2005Q2

REPORT INFORMATION
  Report Type: 
  Country: None (occurrence: None)
  Receive Date: 20050615
  Receipt Date: 20050601
  Transmission Date: 20051028
  Serious: Yes (Disabling)
  Sender: FDA-Public Use
  Company Number: 200511450BBE

PATIENT
  Age: 8 Month
  Sex: Male

DRUGS (1)
  1. HELIXATE FS [Suspect]
     Dosage: INTRAVENOUS
     Route: 042

REACTIONS (1)
  - BLOOD DISORDER [None]
